FAERS Safety Report 4391910-2 (Version None)
Quarter: 2004Q3

REPORT INFORMATION
  Report Type: 
  Country: None (occurrence: None)
  Receive Date: 20040701
  Receipt Date: 20040622
  Transmission Date: 20050211
  Serious: Yes (Hospitalization)
  Sender: FDA-Public Use
  Company Number: STA-AE-04-MTX-178

PATIENT
  Age: 72 Year
  Sex: Female

DRUGS (15)
  1. METHOTREXATE [Suspect]
     Indication: RHEUMATOID ARTHRITIS
     Dosage: SEE IMAGE
     Route: 048
     Dates: start: 20040329, end: 20040329
  2. METHOTREXATE [Suspect]
     Indication: RHEUMATOID ARTHRITIS
     Dosage: SEE IMAGE
     Route: 048
     Dates: start: 20040405, end: 20040405
  3. METHOTREXATE [Suspect]
     Indication: RHEUMATOID ARTHRITIS
     Dosage: SEE IMAGE
     Route: 048
     Dates: start: 19940101
  4. CCI-779 (CCI-779, UNSPEC) LOT NO: 2003P1736 [Suspect]
     Indication: RHEUMATOID ARTHRITIS
     Dosage: 4 MG 1 X PER 1 DAY, ORAL
     Route: 048
     Dates: start: 20040309, end: 20040405
  5. CRESTOR [Concomitant]
  6. NORTRIPTYLINE HCL [Concomitant]
  7. FOLIC ACID [Concomitant]
  8. ASPIRIN [Concomitant]
  9. LOPRESSOR [Concomitant]
  10. MOBIC [Concomitant]
  11. NITROGLYCERIN TRANSDERMAL SYSTEM (GLYCERYL TRINITRATE) [Concomitant]
  12. PREDNISONE TAB [Concomitant]
  13. VITAMIN E [Concomitant]
  14. PROTONIX [Concomitant]
  15. ZOCOR [Concomitant]

REACTIONS (8)
  - ALVEOLITIS [None]
  - ASTHENIA [None]
  - CHILLS [None]
  - COUGH [None]
  - DYSPNOEA EXERTIONAL [None]
  - LEUKOPENIA [None]
  - NIGHT SWEATS [None]
  - PYREXIA [None]
